FAERS Safety Report 6146322-8 (Version None)
Quarter: 2009Q2

REPORT INFORMATION
  Report Type: 
  Country: None (occurrence: None)
  Receive Date: 20090403
  Receipt Date: 20090322
  Transmission Date: 20091009
  Serious: Yes (Death)
  Sender: FDA-Public Use
  Company Number: PIR# 0903024

PATIENT
  Age: 7 Year
  Sex: Female

DRUGS (1)
  1. STERILE WATER FOR INJECTION [Suspect]

REACTIONS (4)
  - BLOOD SODIUM DECREASED [None]
  - BRAIN OEDEMA [None]
  - CONVULSION [None]
  - RESPIRATORY ARREST [None]
